FAERS Safety Report 10229547 (Version 1)
Quarter: 2014Q2

REPORT INFORMATION
  Report Type: Spontaneous
  Country: GB (occurrence: None)
  Receive Date: 20140609
  Receipt Date: 20140609
  Transmission Date: 20141212
  Serious: Yes (Other)
  Sender: FDA-Public Use
  Company Number: SYM-2014-21444

PATIENT
  Age: 37 Year
  Sex: Female

DRUGS (2)
  1. METRONIDAZOLE (METRONIDAZOLE) [Suspect]
     Indication: BACTERIAL VAGINOSIS
     Route: 048
     Dates: start: 20140507, end: 20140511
  2. INTRAUTERINE CONTRACEPTIVE DEVICE [Concomitant]

REACTIONS (7)
  - Dysgeusia [None]
  - Tongue disorder [None]
  - Furuncle [None]
  - Crying [None]
  - Depressed mood [None]
  - Night sweats [None]
  - Tinnitus [None]
